FAERS Safety Report 7352117-X (Version None)
Quarter: 2011Q1

REPORT INFORMATION
  Report Type: 
  Country: None (occurrence: None)
  Receive Date: 20110309
  Receipt Date: 20110309
  Transmission Date: 20110831
  Serious: Yes (Hospitalization)
  Sender: FDA-Public Use
  Company Number: None

PATIENT
  Sex: Female
  Weight: 107.05 kg

DRUGS (2)
  1. CARBOPLATIN [Suspect]
     Dosage: 567 MG
     Dates: end: 20110224
  2. TAXOL [Suspect]
     Dosage: 350 MG
     Dates: end: 20110224

REACTIONS (7)
  - DIARRHOEA [None]
  - BODY TEMPERATURE INCREASED [None]
  - CULTURE STOOL POSITIVE [None]
  - NAUSEA [None]
  - PAIN [None]
  - NEUTROPHIL COUNT DECREASED [None]
  - CLOSTRIDIAL INFECTION [None]
